FAERS Safety Report 8300214-4 (Version None)
Quarter: 2012Q2

REPORT INFORMATION
  Report Type: 
  Country: None (occurrence: None)
  Receive Date: 20120420
  Receipt Date: 20120419
  Transmission Date: 20120825
  Serious: Yes (Other)
  Sender: FDA-Public Use
  Company Number: IT-PFIZER INC-2012097111

PATIENT
  Age: 86 Year
  Sex: Female

DRUGS (8)
  1. COUMADIN [Concomitant]
     Route: 048
  2. ESCITALOPRAM OXALATE [Concomitant]
     Dosage: 5 MG, UNK
     Route: 048
  3. PANTOPRAZOLE SODIUM [Concomitant]
     Dosage: 20 MG, UNK
     Route: 048
  4. ZOLPIDEM TARTRATE [Concomitant]
     Dosage: 10 MG, UNK
     Route: 048
  5. AMIODARONE HYDROCHLORIDE [Concomitant]
     Dosage: 200 MG, UNK
     Route: 048
  6. LYRICA [Suspect]
     Indication: PAIN
     Dosage: 75 MG, 1X/DAY
     Route: 048
     Dates: start: 20120321, end: 20120323
  7. FUROSEMIDE [Concomitant]
     Dosage: 500 MG, UNK
     Route: 048
  8. CARVEDILOL [Concomitant]
     Dosage: 25 MG, UNK
     Route: 048

REACTIONS (2)
  - CONFUSIONAL STATE [None]
  - PSYCHOMOTOR RETARDATION [None]
